FAERS Safety Report 19475772 (Version 1)
Quarter: 2021Q2

REPORT INFORMATION
  Report Type: Report from Study
  Country: IT (occurrence: IT)
  Receive Date: 20210630
  Receipt Date: 20210630
  Transmission Date: 20210717
  Serious: Yes (Death)
  Sender: FDA-Public Use
  Company Number: IT-PFIZER INC-2021705201

PATIENT
  Age: 93 Year
  Sex: Male

DRUGS (19)
  1. HYDROXYCHLOROQUINE [Interacting]
     Active Substance: HYDROXYCHLOROQUINE
     Indication: COVID-19
     Dosage: 800 MG, 1X/DAY FOR THE FIRST DAY
     Route: 065
     Dates: start: 2020, end: 2020
  2. ENOXAPARIN [Concomitant]
     Active Substance: ENOXAPARIN
     Dosage: UNK
  3. VILDAGLIPTIN [Concomitant]
     Active Substance: VILDAGLIPTIN
     Dosage: UNK
  4. AZITHROMYCIN ANHYDROUS. [Interacting]
     Active Substance: AZITHROMYCIN ANHYDROUS
     Indication: COVID-19
     Dosage: 500 MG, 1X/DAY FIRST DAY
     Route: 065
     Dates: start: 2020, end: 2020
  5. HYDROXYCHLOROQUINE [Interacting]
     Active Substance: HYDROXYCHLOROQUINE
     Dosage: 400 MG, 1X/DAY FOR 5?7 DAYS,
     Route: 065
     Dates: start: 2020, end: 2020
  6. CEFTRIAXONE. [Concomitant]
     Active Substance: CEFTRIAXONE
     Dosage: UNK
  7. BISOPROLOL [Concomitant]
     Active Substance: BISOPROLOL
     Dosage: UNK
  8. AZITHROMYCIN ANHYDROUS. [Suspect]
     Active Substance: AZITHROMYCIN ANHYDROUS
     Dosage: 250 MG, 1X/DAY 3?4 DAYS
     Route: 065
     Dates: start: 2020, end: 2020
  9. DUTASTERIDE. [Concomitant]
     Active Substance: DUTASTERIDE
     Dosage: UNK
  10. RAMIPRIL. [Concomitant]
     Active Substance: RAMIPRIL
     Dosage: UNK
  11. FUROSEMIDE. [Concomitant]
     Active Substance: FUROSEMIDE
     Dosage: UNK
  12. TAMSULOSIN [Concomitant]
     Active Substance: TAMSULOSIN
     Dosage: UNK
  13. METFORMIN [Concomitant]
     Active Substance: METFORMIN HYDROCHLORIDE
     Dosage: UNK
  14. SIMVASTATIN. [Concomitant]
     Active Substance: SIMVASTATIN
     Dosage: UNK
  15. LOPINAVIR/RITONAVIR [Interacting]
     Active Substance: LOPINAVIR\RITONAVIR
     Indication: COVID-19
     Dosage: 400/100 MG FOR 7?14 DAYS
     Route: 048
     Dates: start: 2020, end: 2020
  16. INSULIN [Concomitant]
     Active Substance: INSULIN NOS
     Dosage: UNK
  17. PERINDOPRIL [Concomitant]
     Active Substance: PERINDOPRIL
     Dosage: UNK
  18. BARNIDIPINE [Concomitant]
     Active Substance: BARNIDIPINE
     Dosage: UNK
  19. GLICLAZIDE [Concomitant]
     Active Substance: GLICLAZIDE
     Dosage: UNK

REACTIONS (2)
  - Drug interaction [Fatal]
  - Electrocardiogram QT prolonged [Fatal]

NARRATIVE: CASE EVENT DATE: 2020
